FAERS Safety Report 7347708-6 (Version None)
Quarter: 2011Q1

REPORT INFORMATION
  Report Type: 
  Country: None (occurrence: None)
  Receive Date: 20110311
  Receipt Date: 20110303
  Transmission Date: 20110831
  Serious: Yes (Other)
  Sender: FDA-Public Use
  Company Number: B0703695A

PATIENT
  Age: 61 Year
  Sex: Female

DRUGS (2)
  1. TRIZIVIR [Suspect]
     Indication: HIV INFECTION
     Route: 048
  2. KIVEXA [Suspect]
     Indication: HIV INFECTION
     Route: 048

REACTIONS (4)
  - OCULAR ICTERUS [None]
  - BLOOD CHOLESTEROL INCREASED [None]
  - DIARRHOEA [None]
  - BODY FAT DISORDER [None]
